FAERS Safety Report 7095530-0 (Version None)
Quarter: 2010Q4

REPORT INFORMATION
  Report Type: 
  Country: None (occurrence: None)
  Receive Date: 20101102
  Receipt Date: 20101018
  Transmission Date: 20110411
  Serious: Yes (Death)
  Sender: FDA-Public Use
  Company Number: 011588

PATIENT
  Age: 74 Year
  Sex: Male

DRUGS (3)
  1. PLETAL(CILOSTAZOL) TABLET [Suspect]
     Dosage: 100 MG, ORAL
     Route: 048
  2. ASPIRIN [Concomitant]
  3. PLAVIX [Concomitant]

REACTIONS (1)
  - RETROPERITONEAL HAEMATOMA [None]
